FAERS Safety Report 6315065-X (Version None)
Quarter: 2009Q3

REPORT INFORMATION
  Report Type: 
  Country: None (occurrence: None)
  Receive Date: 20090819
  Receipt Date: 20090814
  Transmission Date: 20100115
  Serious: Yes (Hospitalization)
  Sender: FDA-Public Use
  Company Number: US-GILEAD-2009-0023614

PATIENT
  Sex: Female
  Weight: 73.094 kg

DRUGS (14)
  1. LETAIRIS [Suspect]
     Indication: PULMONARY ARTERIAL HYPERTENSION
     Route: 048
     Dates: start: 20090520
  2. AMLODIPINE BESYLATE [Concomitant]
  3. LASIX [Concomitant]
  4. SPIRONOLACTONE [Concomitant]
  5. METOPROLOL [Concomitant]
  6. NITROGLYCERIN [Concomitant]
  7. VENTOLIN [Concomitant]
  8. LIPITOR [Concomitant]
  9. HUMALOG [Concomitant]
  10. LEVOTHYROXINE [Concomitant]
  11. LANTUS [Concomitant]
  12. PANTOPRAZOLE SODIUM [Concomitant]
  13. FERROUS SULFATE TAB [Concomitant]
  14. FOLIC ACID [Concomitant]

REACTIONS (3)
  - ABDOMINAL PAIN [None]
  - CHEST PAIN [None]
  - DYSPNOEA [None]
